FAERS Safety Report 4314547-X (Version None)
Quarter: 2004Q1

REPORT INFORMATION
  Report Type: 
  Country: None (occurrence: None)
  Receive Date: 20040309
  Receipt Date: 20040220
  Transmission Date: 20041129
  Serious: Yes (Other)
  Sender: FDA-Public Use
  Company Number: 2004-DE-00848GD

PATIENT
  Age: 41 Year
  Sex: Male

DRUGS (3)
  1. AZATHIOPRINE [Suspect]
     Indication: IMMUNOSUPPRESSION
     Dosage: 100 - 150 MG (NR), PO
     Route: 048
  2. PREDNISOLONE [Suspect]
     Indication: IMMUNOSUPPRESSION
     Dosage: 1 MGKG (NR), PO
     Route: 048
  3. INTRAVENOUS IMMUNOGLOBULIN (IMMUNOGLOBULINS) [Suspect]
     Indication: IMMUNOSUPPRESSION
     Dosage: 2 G/KG OVER 2 DAYS (NR), IV
     Route: 042

REACTIONS (2)
  - FEMORAL NERVE PALSY [None]
  - HAEMORRHAGE [None]
